FAERS Safety Report 7451482-2 (Version None)
Quarter: 2011Q2

REPORT INFORMATION
  Report Type: 
  Country: None (occurrence: None)
  Receive Date: 20110502
  Receipt Date: 20110421
  Transmission Date: 20111010
  Serious: Yes (Hospitalization, Other)
  Sender: FDA-Public Use
  Company Number: US-ASTRAZENECA-2008UW23525

PATIENT
  Sex: Female

DRUGS (4)
  1. ARIMIDEX [Suspect]
     Indication: BREAST CANCER
     Route: 048
     Dates: start: 20080101
  2. TAMOXIFEN CITRATE [Concomitant]
  3. CALCIUM [Concomitant]
  4. VITAMIN TAB [Concomitant]

REACTIONS (4)
  - BREAST CANCER [None]
  - BREAST LUMP REMOVAL [None]
  - HAIR TEXTURE ABNORMAL [None]
  - ALOPECIA [None]
